FAERS Safety Report 10412095 (Version 1)
Quarter: 2014Q3

REPORT INFORMATION
  Report Type: Spontaneous
  Country: BR (occurrence: BR)
  Receive Date: 20140827
  Receipt Date: 20140827
  Transmission Date: 20150326
  Serious: Yes (Hospitalization, Other)
  Sender: FDA-Public Use
  Company Number: BR-ROXANE LABORATORIES, INC.-2014-RO-01267RO

PATIENT
  Age: 52 Year
  Sex: Male

DRUGS (1)
  1. LITHIUM CARBONATE. [Suspect]
     Active Substance: LITHIUM CARBONATE
     Indication: BIPOLAR DISORDER
     Dosage: 900 MG
     Route: 065

REACTIONS (8)
  - Hyperparathyroidism [Unknown]
  - Neurotoxicity [Recovered/Resolved with Sequelae]
  - Toxicity to various agents [Recovered/Resolved with Sequelae]
  - Sepsis [Recovered/Resolved]
  - Urinary tract infection [Recovered/Resolved with Sequelae]
  - Hypothyroidism [Unknown]
  - Cerebellar ataxia [Not Recovered/Not Resolved]
  - Diabetes insipidus [Unknown]

NARRATIVE: CASE EVENT DATE: 201309
